FAERS Safety Report 9038708 (Version 1)
Quarter: 2013Q1

REPORT INFORMATION
  Report Type: Spontaneous
  Country: US (occurrence: None)
  Receive Date: 20130123
  Receipt Date: 20130123
  Transmission Date: 20140127
  Serious: Yes (Life-Threatening)
  Sender: FDA-Public Use
  Company Number: None

PATIENT
  Age: 89 Year
  Sex: Female
  Weight: 51.71 kg

DRUGS (1)
  1. LIDODERM PATCH [Suspect]
     Indication: ARTHRALGIA
     Route: 062
     Dates: start: 20121107, end: 20130107

REACTIONS (6)
  - Decreased appetite [None]
  - Dysgeusia [None]
  - Weight decreased [None]
  - Asthenia [None]
  - Tremor [None]
  - Muscle spasms [None]
